FAERS Safety Report 6116039-4 (Version None)
Quarter: 2009Q1

REPORT INFORMATION
  Report Type: 
  Country: None (occurrence: None)
  Receive Date: 20090314
  Receipt Date: 20081211
  Transmission Date: 20090719
  Serious: No
  Sender: FDA-Public Use
  Company Number: US-ABBOTT-08P-163-0492548-00

PATIENT
  Age: 16 Year
  Sex: Female

DRUGS (4)
  1. HUMIRA [Suspect]
     Indication: CROHN'S DISEASE
     Route: 058
     Dates: start: 20070101, end: 20081201
  2. HUMIRA [Suspect]
     Indication: PSORIASIS
  3. PREDNISONE [Concomitant]
     Indication: CROHN'S DISEASE
  4. PREDNISONE [Concomitant]
     Indication: PSORIASIS

REACTIONS (1)
  - JOINT SWELLING [None]
